FAERS Safety Report 7426244-2 (Version None)
Quarter: 2011Q2

REPORT INFORMATION
  Report Type: 
  Country: None (occurrence: None)
  Receive Date: 20110420
  Receipt Date: 20110414
  Transmission Date: 20111010
  Serious: Yes (Hospitalization)
  Sender: FDA-Public Use
  Company Number: A0896986A

PATIENT
  Age: 64 Year
  Sex: Female

DRUGS (2)
  1. AVANDAMET [Suspect]
     Route: 048
     Dates: start: 20040308, end: 20070814
  2. AVANDIA [Suspect]
     Route: 048
     Dates: start: 20050401, end: 20061101

REACTIONS (1)
  - ARTERIOSCLEROSIS [None]
